FAERS Safety Report 4370945-X (Version None)
Quarter: 2004Q2

REPORT INFORMATION
  Report Type: 
  Country: None (occurrence: None)
  Receive Date: 20040601
  Receipt Date: 20040518
  Transmission Date: 20050107
  Serious: Yes (Death, Other)
  Sender: FDA-Public Use
  Company Number: 2004016561

PATIENT
  Age: 40 Year
  Sex: Male
  Weight: 72 kg

DRUGS (1)
  1. SERTRALINE HCL [Suspect]
     Indication: DEPRESSION
     Dosage: ( 1 IN 1 D), ORAL
     Route: 048
     Dates: start: 20030801, end: 20031127

REACTIONS (2)
  - INJURY ASPHYXIATION [None]
  - INTENTIONAL SELF-INJURY [None]
